FAERS Safety Report 19315488 (Version 1)
Quarter: 2021Q2

REPORT INFORMATION
  Report Type: Spontaneous
  Country: RS (occurrence: RS)
  Receive Date: 20210527
  Receipt Date: 20210527
  Transmission Date: 20210717
  Serious: Yes (Other)
  Sender: FDA-Public Use
  Company Number: RS-AMGEN-SRBSP2021078354

PATIENT
  Age: 47 Year
  Sex: Female

DRUGS (7)
  1. AZATHIOPRINE. [Concomitant]
     Active Substance: AZATHIOPRINE
  2. ELTROMBOPAG [Concomitant]
     Active Substance: ELTROMBOPAG
  3. NPLATE [Suspect]
     Active Substance: ROMIPLOSTIM
     Indication: IMMUNE THROMBOCYTOPENIA
     Dosage: AVEARGE DOSE 8.2 MICROGRAM/KILOGRAM, QWK
     Route: 065
  4. CORTICOSTEROIDS [Concomitant]
     Active Substance: CORTICOSTEROID NOS
  5. LOW?MOLECULAR?WEIGHT HEPARIN CALCIUM [Concomitant]
     Active Substance: HEPARIN CALCIUM
  6. VINCA ALKALOIDS AND ANALOGUES [Concomitant]
     Active Substance: UNSPECIFIED INGREDIENT
  7. WARFARIN [Concomitant]
     Active Substance: WARFARIN
     Indication: PULMONARY EMBOLISM

REACTIONS (3)
  - COVID-19 pneumonia [Unknown]
  - Pulmonary embolism [Unknown]
  - Thrombocytosis [Unknown]
